FAERS Safety Report 5376483-X (Version None)
Quarter: 2007Q3

REPORT INFORMATION
  Report Type: 
  Country: None (occurrence: None)
  Receive Date: 20070702
  Receipt Date: 20070620
  Transmission Date: 20080115
  Serious: Yes (Other)
  Sender: FDA-Public Use
  Company Number: IE-PFIZER INC-2007052658

PATIENT

DRUGS (1)
  1. SUTENT [Suspect]

REACTIONS (2)
  - MIGRAINE [None]
  - POLYCYTHAEMIA [None]
